FAERS Safety Report 12378859 (Version 1)
Quarter: 2016Q2

REPORT INFORMATION
  Report Type: Spontaneous
  Country: US (occurrence: US)
  Receive Date: 20160517
  Receipt Date: 20160517
  Transmission Date: 20160815
  Serious: No
  Sender: FDA-Public Use
  Company Number: US-RELYPSA-RLY2016000226

PATIENT

DRUGS (19)
  1. COLACE [Concomitant]
     Active Substance: DOCUSATE SODIUM
  2. URSODIOL. [Concomitant]
     Active Substance: URSODIOL
  3. SODIUM BICARBONATE. [Concomitant]
     Active Substance: SODIUM BICARBONATE
  4. FIBERCON [Concomitant]
     Active Substance: CALCIUM POLYCARBOPHIL
  5. CARVEDILOL. [Concomitant]
     Active Substance: CARVEDILOL
  6. XANAX [Concomitant]
     Active Substance: ALPRAZOLAM
  7. OMEPRAZOLE. [Concomitant]
     Active Substance: OMEPRAZOLE
  8. PROLIA [Concomitant]
     Active Substance: DENOSUMAB
  9. MELATONIN [Concomitant]
     Active Substance: MELATONIN
  10. VELTASSA [Suspect]
     Active Substance: PATIROMER
     Indication: HYPERKALAEMIA
     Dosage: 8.4 G, QD
     Route: 048
     Dates: start: 20160224
  11. PLAQUENIL                          /00072602/ [Concomitant]
     Active Substance: HYDROXYCHLOROQUINE DIPHOSPHATE
  12. CALCITRIOL. [Concomitant]
     Active Substance: CALCITRIOL
  13. SIMVASTATIN. [Concomitant]
     Active Substance: SIMVASTATIN
  14. CITRACAL PLUS D [Concomitant]
  15. CELEXA [Concomitant]
     Active Substance: CITALOPRAM HYDROBROMIDE
  16. ASPIRIN                            /00002701/ [Concomitant]
     Active Substance: ASPIRIN
  17. FOLIC ACID. [Concomitant]
     Active Substance: FOLIC ACID
  18. DICYCLOMINE HCL [Concomitant]
     Active Substance: DICYCLOMINE HYDROCHLORIDE
  19. ARANESP [Concomitant]
     Active Substance: DARBEPOETIN ALFA
     Dosage: UNK
     Route: 048

REACTIONS (1)
  - Blood potassium increased [Unknown]
